FAERS Safety Report 15196779 (Version 1)
Quarter: 2018Q3

REPORT INFORMATION
  Report Type: Spontaneous
  Country: US (occurrence: US)
  Receive Date: 20180626
  Receipt Date: 20180626
  Transmission Date: 20181010
  Serious: No
  Sender: FDA-Public Use
  Company Number: None

PATIENT
  Age: 32 Year
  Sex: Female

DRUGS (1)
  1. MAVYRET [Suspect]
     Active Substance: GLECAPREVIR\PIBRENTASVIR
     Dates: start: 20180624, end: 20180626

REACTIONS (7)
  - Cough [None]
  - Oral herpes [None]
  - Rhinorrhoea [None]
  - Oropharyngeal pain [None]
  - Ear pain [None]
  - Nasopharyngitis [None]
  - Infection [None]

NARRATIVE: CASE EVENT DATE: 20180626
